FAERS Safety Report 8375518-X (Version None)
Quarter: 2012Q1

REPORT INFORMATION
  Report Type: 
  Country: None (occurrence: None)
  Receive Date: 20120323
  Receipt Date: 20110405
  Transmission Date: 20120608
  Serious: Yes (Hospitalization)
  Sender: FDA-Public Use
  Company Number: 163-21880-11012929

PATIENT
  Age: 70 Year
  Sex: Female
  Weight: 57.7 kg

DRUGS (2)
  1. REVLIMID [Suspect]
     Indication: MULTIPLE MYELOMA
     Dosage: 15 MG, 1 IN 1 D, PO, 25 MG, DAILY FOR 14 DAYS ON THEN 7 DAYS OFF, PO
     Route: 048
     Dates: start: 20091001, end: 20110101
  2. REVLIMID [Suspect]
     Indication: MULTIPLE MYELOMA
     Dosage: 15 MG, 1 IN 1 D, PO, 25 MG, DAILY FOR 14 DAYS ON THEN 7 DAYS OFF, PO
     Route: 048
     Dates: start: 20100601

REACTIONS (2)
  - PNEUMONIA [None]
  - LABORATORY TEST ABNORMAL [None]
